FAERS Safety Report 9916343 (Version 1)
Quarter: 2014Q1

REPORT INFORMATION
  Report Type: Spontaneous
  Country: JP (occurrence: JP)
  Receive Date: 20140221
  Receipt Date: 20140221
  Transmission Date: 20141002
  Serious: No
  Sender: FDA-Public Use
  Company Number: PHHY2014JP020987

PATIENT
  Sex: 0

DRUGS (3)
  1. TASIGNA [Suspect]
     Indication: CHRONIC MYELOID LEUKAEMIA
     Dosage: 600 MG, DAILY
     Route: 048
  2. TASIGNA [Suspect]
     Dosage: 450 MG (2 DF IN THE MORNING AND 1 DF IN THE EVENING)
     Route: 048
  3. TASIGNA [Suspect]
     Dosage: 600 MG (2 DF IN THE MORNING AND 2 DF IN THE EVENING)
     Route: 048

REACTIONS (1)
  - Incorrect dose administered [Unknown]
